FAERS Safety Report 6094881-6 (Version None)
Quarter: 2009Q1

REPORT INFORMATION
  Report Type: 
  Country: None (occurrence: None)
  Receive Date: 20090227
  Receipt Date: 20090218
  Transmission Date: 20090719
  Serious: Yes (Other)
  Sender: FDA-Public Use
  Company Number: FR-JNJFOC-20090200711

PATIENT
  Sex: Male
  Weight: 70 kg

DRUGS (5)
  1. DAKTARIN [Suspect]
     Route: 048
  2. DAKTARIN [Suspect]
     Indication: GINGIVITIS
     Route: 048
  3. KARDEGIC [Concomitant]
     Indication: CARDIAC DISORDER
     Route: 048
  4. AMLOR [Concomitant]
     Indication: CARDIAC DISORDER
     Route: 048
  5. CRESTOR [Concomitant]
     Indication: HYPERCHOLESTEROLAEMIA
     Route: 048

REACTIONS (5)
  - ARTHRALGIA [None]
  - DYSPEPSIA [None]
  - ERUCTATION [None]
  - THROAT IRRITATION [None]
  - TONGUE DISCOLOURATION [None]
